FAERS Safety Report 6246262-X (Version None)
Quarter: 2009Q2

REPORT INFORMATION
  Report Type: 
  Country: None (occurrence: None)
  Receive Date: 20090626
  Receipt Date: 20090409
  Transmission Date: 20091009
  Serious: Yes (Hospitalization, Other)
  Sender: FDA-Public Use
  Company Number: GB-BAYER-200812544GPV

PATIENT
  Age: 15 Year
  Sex: Female

DRUGS (4)
  1. NIFEDIPINE [Suspect]
     Indication: HYPERTENSION
     Route: 048
  2. CYCLOSPORINE [Suspect]
     Indication: IMMUNOSUPPRESSION
     Route: 048
  3. AZATHIOPRINE [Concomitant]
     Indication: IMMUNOSUPPRESSION
     Route: 048
  4. PREDNISOLONE [Concomitant]
     Indication: IMMUNOSUPPRESSION
     Route: 048

REACTIONS (3)
  - GINGIVAL DISORDER [None]
  - GINGIVAL HYPERPLASIA [None]
  - TOOTH HYPOPLASIA [None]
